FAERS Safety Report 5536107-5 (Version None)
Quarter: 2007Q4

REPORT INFORMATION
  Report Type: 
  Country: None (occurrence: None)
  Receive Date: 20071206
  Receipt Date: 20071203
  Transmission Date: 20080405
  Serious: Yes (Death)
  Sender: FDA-Public Use
  Company Number: GB-SANOFI-SYNTHELABO-F01200701598

PATIENT
  Sex: Male
  Weight: 84 kg

DRUGS (2)
  1. CAPECITABINE [Suspect]
     Dosage: 1000 MG/M2 BID DAYS 1-14 4000 MG
     Route: 048
     Dates: start: 20070822, end: 20070905
  2. OXALIPLATIN [Suspect]
     Indication: COLORECTAL CANCER METASTATIC
     Route: 041
     Dates: start: 20070822, end: 20070822

REACTIONS (1)
  - THROMBOSIS [None]
